FAERS Safety Report 13299151 (Version 1)
Quarter: 2017Q1

REPORT INFORMATION
  Report Type: Spontaneous
  Country: FR (occurrence: FR)
  Receive Date: 20170306
  Receipt Date: 20170306
  Transmission Date: 20170428
  Serious: Yes (Hospitalization)
  Sender: FDA-Public Use
  Company Number: FR-SA-2017SA036935

PATIENT
  Age: 58 Year
  Sex: Female

DRUGS (15)
  1. NEORAL [Suspect]
     Active Substance: CYCLOSPORINE
     Indication: LIVER TRANSPLANT
     Route: 048
     Dates: start: 201508
  2. ATORVASTATIN [Suspect]
     Active Substance: ATORVASTATIN
     Route: 048
  3. IMOVANE [Suspect]
     Active Substance: ZOPICLONE
     Route: 048
  4. DELURSAN [Suspect]
     Active Substance: URSODIOL
     Route: 048
  5. EUPRESSYL [Suspect]
     Active Substance: URAPIDIL
     Route: 048
  6. CORTANCYL [Suspect]
     Active Substance: PREDNISONE
     Route: 048
     Dates: start: 201512
  7. CELLCEPT [Suspect]
     Active Substance: MYCOPHENOLATE MOFETIL\MYCOPHENOLATE MOFETIL HYDROCHLORIDE
     Indication: LIVER TRANSPLANT
     Route: 048
     Dates: start: 201512
  8. CERTICAN [Suspect]
     Active Substance: EVEROLIMUS
     Indication: LIVER TRANSPLANT
     Route: 048
     Dates: start: 201612
  9. NOVORAPID [Suspect]
     Active Substance: INSULIN ASPART
     Route: 058
  10. EUPANTOL [Suspect]
     Active Substance: PANTOPRAZOLE SODIUM
     Route: 048
  11. KARDEGIC [Suspect]
     Active Substance: ASPIRIN LYSINE
     Route: 048
  12. SOLOSTAR [Concomitant]
     Active Substance: DEVICE
     Dates: start: 201612
  13. TOUJEO [Suspect]
     Active Substance: INSULIN GLARGINE
     Dates: start: 201612
  14. LANTUS [Concomitant]
     Active Substance: INSULIN GLARGINE
  15. ZANIDIP [Suspect]
     Active Substance: LERCANIDIPINE HYDROCHLORIDE
     Route: 048

REACTIONS (2)
  - Visual acuity reduced [Recovering/Resolving]
  - Papilloedema [Recovering/Resolving]

NARRATIVE: CASE EVENT DATE: 201701
